FAERS Safety Report 16126545 (Version 1)
Quarter: 2019Q1

REPORT INFORMATION
  Report Type: Spontaneous
  Country: CN (occurrence: CN)
  Receive Date: 20190328
  Receipt Date: 20190328
  Transmission Date: 20190418
  Serious: Yes (Hospitalization)
  Sender: FDA-Public Use
  Company Number: CN-009507513-1903CHN011808

PATIENT
  Sex: Male

DRUGS (2)
  1. MOMETASONE FUROATE. [Suspect]
     Active Substance: MOMETASONE FUROATE
     Indication: ECZEMA
     Dosage: UNK
     Route: 061
  2. MOMETASONE FUROATE. [Suspect]
     Active Substance: MOMETASONE FUROATE
     Dosage: 1 DF, BID
     Route: 061
     Dates: start: 2019

REACTIONS (3)
  - Hospitalisation [Unknown]
  - Eczema [Unknown]
  - Incorrect dose administered [Unknown]

NARRATIVE: CASE EVENT DATE: 2019
